FAERS Safety Report 26037095 (Version 1)
Quarter: 2025Q4

REPORT INFORMATION
  Report Type: Spontaneous
  Country: US (occurrence: US)
  Receive Date: 20251112
  Receipt Date: 20251112
  Transmission Date: 20260118
  Serious: No
  Sender: PARATEK PHARMACEUTICALS
  Company Number: US-PARATEK PHARMACEUTICALS, INC.-2025PTK00159

PATIENT
  Age: 34 Year
  Sex: Female
  Weight: 98.413 kg

DRUGS (5)
  1. NUZYRA [Suspect]
     Active Substance: OMADACYCLINE
     Indication: Peripheral swelling
     Dosage: 300 MG, 1X/DAY
     Route: 048
     Dates: start: 20250129, end: 20250131
  2. NUZYRA [Suspect]
     Active Substance: OMADACYCLINE
     Dosage: 150 MG, 1X/DAY
     Route: 048
     Dates: start: 20250201, end: 20250201
  3. METHADONE HYDROCHLORIDE [Concomitant]
     Active Substance: METHADONE HYDROCHLORIDE
     Dosage: 40 MG, 1X/DAY
     Route: 048
  4. ALBUTEROL SULFATE [Concomitant]
     Active Substance: ALBUTEROL SULFATE
     Dosage: 2 PUFFS, AS NEEDED EVERY 4 HOURS
  5. CLOTRIMAZOLE [Concomitant]
     Active Substance: CLOTRIMAZOLE
     Dosage: UNK, 2X/DAY
     Route: 061

REACTIONS (3)
  - Tachycardia [Recovered/Resolved]
  - Nausea [Recovered/Resolved]
  - Off label use [Recovered/Resolved]

NARRATIVE: CASE EVENT DATE: 20250129
